FAERS Safety Report 15841956 (Version 1)
Quarter: 2019Q1

REPORT INFORMATION
  Report Type: Spontaneous
  Country: US (occurrence: US)
  Receive Date: 20190118
  Receipt Date: 20190118
  Transmission Date: 20190417
  Serious: No
  Sender: FDA-Public Use
  Company Number: US-GLAXOSMITHKLINE-US2019004533

PATIENT
  Age: 58 Year
  Sex: Male

DRUGS (1)
  1. FLONASE SENSIMIST ALLERGY RELIEF [Suspect]
     Active Substance: FLUTICASONE FUROATE
     Indication: SINUS DISORDER
     Dosage: 4 TIME A DAY
     Dates: start: 20190108

REACTIONS (6)
  - Vision blurred [Recovering/Resolving]
  - Eye swelling [Recovering/Resolving]
  - Inappropriate schedule of product administration [Unknown]
  - Lacrimation increased [Recovering/Resolving]
  - Overdose [Unknown]
  - Product use in unapproved indication [Unknown]

NARRATIVE: CASE EVENT DATE: 20190108
